FAERS Safety Report 17843194 (Version 1)
Quarter: 2020Q2

REPORT INFORMATION
  Report Type: Report from Study
  Country: None (occurrence: IN)
  Receive Date: 20200530
  Receipt Date: 20200530
  Transmission Date: 20200714
  Serious: Yes (Death, Other)
  Sender: FDA-Public Use
  Company Number: IN-MICRO LABS LIMITED-ML2020-01653

PATIENT
  Sex: Female

DRUGS (6)
  1. ASPIRIN. [Suspect]
     Active Substance: ASPIRIN
     Indication: PYREXIA
  2. PARACETAMOL [Suspect]
     Active Substance: ACETAMINOPHEN
     Dosage: LOW DOSE
  3. DICLOFENAC [Suspect]
     Active Substance: DICLOFENAC
     Indication: BACK PAIN
     Dosage: SINGLE DOSE
  4. TERLIPRESSIN [Suspect]
     Active Substance: TERLIPRESSIN
     Dosage: EVERY 4 HOURS
     Route: 042
  5. MEFENAMIC ACID. [Suspect]
     Active Substance: MEFENAMIC ACID
     Indication: PYREXIA
  6. TRANEXAMIC ACID. [Suspect]
     Active Substance: TRANEXAMIC ACID
     Indication: HAEMATEMESIS

REACTIONS (3)
  - Haematemesis [Fatal]
  - Drug interaction [Fatal]
  - Drug ineffective [Unknown]
